FAERS Safety Report 25484540 (Version 1)
Quarter: 2025Q2

REPORT INFORMATION
  Report Type: Spontaneous
  Country: US (occurrence: None)
  Receive Date: 20250626
  Receipt Date: 20250626
  Transmission Date: 20250717
  Serious: Yes (Other)
  Sender: FDA-CTU
  Company Number: None

PATIENT
  Age: 68 Year
  Sex: Female
  Weight: 63.9 kg

DRUGS (7)
  1. IZERVAY [Suspect]
     Active Substance: AVACINCAPTAD PEGOL SODIUM
  2. GABAPENTIN [Concomitant]
     Active Substance: GABAPENTIN
  3. ALPRAZOLAM [Concomitant]
     Active Substance: ALPRAZOLAM
  4. FLUOXETINE [Concomitant]
     Active Substance: FLUOXETINE HYDROCHLORIDE
  5. Lutein-Zeaxanthin Oral [Concomitant]
  6. NICOTINE POLACRILEX [Concomitant]
     Active Substance: NICOTINE
  7. VITAMIN D [Concomitant]
     Active Substance: VITAMIN D NOS

REACTIONS (7)
  - Eye pain [None]
  - Eye pruritus [None]
  - Vision blurred [None]
  - Exophthalmos [None]
  - Visual impairment [None]
  - Photosensitivity reaction [None]
  - Eye disorder [None]

NARRATIVE: CASE EVENT DATE: 20250519
